FAERS Safety Report 5500066-1 (Version None)
Quarter: 2007Q4

REPORT INFORMATION
  Report Type: 
  Country: None (occurrence: None)
  Receive Date: 20071024
  Receipt Date: 20071012
  Transmission Date: 20080405
  Serious: Yes (Hospitalization)
  Sender: FDA-Public Use
  Company Number: 2007325001

PATIENT
  Sex: Female
  Weight: 69 kg

DRUGS (1)
  1. ROGAINE [Suspect]
     Indication: ALOPECIA
     Dosage: 6 SPRAY ^TRUSTS^ BID (2 IN 1 D),TOPICAL
     Route: 061
     Dates: start: 20070111

REACTIONS (5)
  - ALOPECIA [None]
  - BASEDOW'S DISEASE [None]
  - DYSPNOEA [None]
  - OEDEMA PERIPHERAL [None]
  - THYROTOXIC CRISIS [None]
